FAERS Safety Report 4499314-9 (Version None)
Quarter: 2004Q4

REPORT INFORMATION
  Report Type: 
  Country: None (occurrence: None)
  Receive Date: 20040928
  Receipt Date: 20040729
  Transmission Date: 20050328
  Serious: No
  Sender: FDA-Public Use
  Company Number: 04P-163-0268434-00

PATIENT
  Age: 35 Year
  Sex: Female

DRUGS (6)
  1. HUMIRA [Suspect]
     Indication: RHEUMATOID ARTHRITIS
     Dosage: 40 MG, 1 IN 2 WK, SUBCUTANEOUS
     Route: 058
     Dates: start: 20040727
  2. PREDNISONE [Concomitant]
  3. LEFLUNOMIDE [Concomitant]
  4. CARISOPRODOL [Concomitant]
  5. BACTRIM [Concomitant]
  6. CETIRIZINE HCL [Concomitant]

REACTIONS (6)
  - DIZZINESS [None]
  - DYSPEPSIA [None]
  - EYE IRRITATION [None]
  - FATIGUE [None]
  - HEADACHE [None]
  - NOCTURNAL DYSPNOEA [None]
